FAERS Safety Report 9310653 (Version 3)
Quarter: 2015Q1

REPORT INFORMATION
  Report Type: Spontaneous
  Country: JP (occurrence: JP)
  Receive Date: 20130527
  Receipt Date: 20150101
  Transmission Date: 20150721
  Serious: Yes (Life-Threatening, Hospitalization, Other)
  Sender: FDA-Public Use
  Company Number: JP-009507513-1305JPN014575

PATIENT
  Age: 62 Year
  Sex: Male
  Weight: 70 kg

DRUGS (15)
  1. REBETOL [Suspect]
     Active Substance: RIBAVIRIN
     Dosage: ODD NUMBER DAY: 200MG+400MG;THE EVEN NUMBER DAY: 200MG X TWICE
     Route: 048
     Dates: start: 20130507, end: 20130516
  2. GASMOTIN [Concomitant]
     Active Substance: MOSAPRIDE CITRATE
     Dosage: DOSAGE IS UNCERTAIN DURING A DAY
     Route: 048
  3. PEGINTRON [Suspect]
     Active Substance: PEGINTERFERON ALFA-2B
     Dosage: 100 MICROGRAM, QW
     Route: 058
     Dates: start: 20121106, end: 20130514
  4. AMARYL [Concomitant]
     Active Substance: GLIMEPIRIDE
     Indication: DIABETES MELLITUS
     Dosage: 1 MG, QD
     Route: 048
     Dates: end: 20130516
  5. FAMOTIDINE OD [Concomitant]
     Dosage: 20 MG, BID
     Route: 048
     Dates: end: 20130516
  6. REBETOL [Suspect]
     Active Substance: RIBAVIRIN
     Indication: CHRONIC HEPATITIS C
     Dosage: 600 MG, QD, 200MG+400MG
     Route: 048
     Dates: start: 20130108, end: 20130506
  7. NAUZELIN [Concomitant]
     Active Substance: DOMPERIDONE
     Dosage: DOSAGE IS UNCERTAIN DURING A DAY.
     Route: 048
  8. PEGINTRON [Suspect]
     Active Substance: PEGINTERFERON ALFA-2B
     Indication: HEPATOCELLULAR CARCINOMA
     Dosage: 100 MICROGRAM, QW
     Route: 058
     Dates: start: 20121023, end: 20121023
  9. REBETOL [Suspect]
     Active Substance: RIBAVIRIN
     Indication: HEPATOCELLULAR CARCINOMA
     Dosage: 400 MG, BID
     Route: 048
     Dates: start: 20121023, end: 20130107
  10. PROMAC (POLAPREZINC) [Concomitant]
     Active Substance: POLAPREZINC
     Dosage: 75 MG, BID
     Route: 048
     Dates: end: 20130516
  11. ALLELOCK [Concomitant]
     Active Substance: OLOPATADINE HYDROCHLORIDE
     Dosage: DOSAGE IS UNCERTAIN DURING A DAY.
     Route: 048
  12. MAGMITT [Concomitant]
     Active Substance: MAGNESIUM OXIDE
     Dosage: 330 MG, TID
     Route: 048
     Dates: end: 20130516
  13. GOODMIN [Concomitant]
     Active Substance: BROTIZOLAM
     Dosage: DOSAGE IS UNCERTAIN DURING A DAY.
     Route: 048
  14. PEGINTRON [Suspect]
     Active Substance: PEGINTERFERON ALFA-2B
     Indication: CHRONIC HEPATITIS C
     Dosage: 50 MICROGRAM, QW
     Route: 058
     Dates: start: 20121030, end: 20121030
  15. LASIX [Concomitant]
     Active Substance: FUROSEMIDE
     Dosage: 40 MG, BID
     Route: 048
     Dates: end: 20130516

REACTIONS (4)
  - Disseminated intravascular coagulation [Unknown]
  - Septic shock [Unknown]
  - Lobar pneumonia [Not Recovered/Not Resolved]
  - Acute kidney injury [Unknown]

NARRATIVE: CASE EVENT DATE: 201305
